FAERS Safety Report 12802165 (Version 1)
Quarter: 2016Q4

REPORT INFORMATION
  Report Type: Spontaneous
  Country: US (occurrence: US)
  Receive Date: 20161003
  Receipt Date: 20161003
  Transmission Date: 20170207
  Serious: No
  Sender: FDA-Public Use
  Company Number: US-JAZZ-2016-US-012197

PATIENT
  Sex: Female

DRUGS (38)
  1. XYREM [Suspect]
     Active Substance: SODIUM OXYBATE
     Dosage: 3.75 G, BID
     Route: 048
     Dates: start: 201303, end: 2013
  2. CYMBALTA [Concomitant]
     Active Substance: DULOXETINE HYDROCHLORIDE
  3. GINKGO BILOBA [Concomitant]
     Active Substance: GINKGO
  4. SYMBICORT [Concomitant]
     Active Substance: BUDESONIDE\FORMOTEROL FUMARATE DIHYDRATE
  5. AMRIX ER [Concomitant]
  6. XOLAIR [Concomitant]
     Active Substance: OMALIZUMAB
  7. LEVOTHYROXINE. [Concomitant]
     Active Substance: LEVOTHYROXINE
  8. TIZANIDINE HCL [Concomitant]
     Active Substance: TIZANIDINE HYDROCHLORIDE
  9. VICOPROFEN [Concomitant]
     Active Substance: HYDROCODONE BITARTRATE\IBUPROFEN
  10. EPIPEN [Concomitant]
     Active Substance: EPINEPHRINE
  11. FLONASE ALLERGY RLF [Concomitant]
  12. XYREM [Suspect]
     Active Substance: SODIUM OXYBATE
     Dosage: 3 G, BID
     Route: 048
     Dates: start: 201504
  13. FENTANYL. [Concomitant]
     Active Substance: FENTANYL
  14. NORCO [Concomitant]
     Active Substance: ACETAMINOPHEN\HYDROCODONE BITARTRATE
  15. NUVIGIL [Concomitant]
     Active Substance: ARMODAFINIL
  16. MUPIROCIN. [Concomitant]
     Active Substance: MUPIROCIN
  17. VENTOLIN HFA [Concomitant]
     Active Substance: ALBUTEROL SULFATE
  18. CALCIUM CITRATE + D [Concomitant]
  19. CELL FOOD [Concomitant]
  20. DOXEPIN [Concomitant]
     Active Substance: DOXEPIN
  21. WELLBUTRIN XL [Concomitant]
     Active Substance: BUPROPION HYDROCHLORIDE
  22. RESTORIL [Concomitant]
     Active Substance: TEMAZEPAM
  23. XYREM [Suspect]
     Active Substance: SODIUM OXYBATE
     Indication: NARCOLEPSY
     Dosage: 2.25 G, BID
     Route: 048
     Dates: start: 201205, end: 201206
  24. KLONOPIN [Concomitant]
     Active Substance: CLONAZEPAM
  25. CYCLOBENZAPRINE HCL [Concomitant]
     Active Substance: CYCLOBENZAPRINE HYDROCHLORIDE
  26. ACTIVELLA [Concomitant]
     Active Substance: ESTRADIOL\NORETHINDRONE ACETATE
  27. VALERIAN [Concomitant]
     Active Substance: VALERIAN
  28. SALINE [Concomitant]
     Active Substance: SODIUM CHLORIDE
  29. XYREM [Suspect]
     Active Substance: SODIUM OXYBATE
     Dosage: 1.5 G, BID
     Route: 048
     Dates: start: 201408, end: 201504
  30. ADDERALL [Suspect]
     Active Substance: AMPHETAMINE ASPARTATE\AMPHETAMINE SULFATE\DEXTROAMPHETAMINE SACCHARATE\DEXTROAMPHETAMINE SULFATE
     Indication: PRODUCT USED FOR UNKNOWN INDICATION
     Dosage: 20 MG
     Dates: start: 20160601
  31. DILAUDID [Suspect]
     Active Substance: HYDROMORPHONE HYDROCHLORIDE
     Indication: PRODUCT USED FOR UNKNOWN INDICATION
     Dosage: 2 MG
     Dates: start: 20160501
  32. PASSION FLOWER [Concomitant]
     Active Substance: PASSIFLORA INCARNATA FLOWER
  33. MAGNESIUM OXIDE. [Concomitant]
     Active Substance: MAGNESIUM OXIDE
  34. VITAMIN D3 [Concomitant]
     Active Substance: CHOLECALCIFEROL
  35. PROZAC [Concomitant]
     Active Substance: FLUOXETINE HYDROCHLORIDE
  36. XYREM [Suspect]
     Active Substance: SODIUM OXYBATE
     Dosage: DOSE ADJUSTMENTS
     Route: 048
     Dates: start: 201206, end: 201303
  37. XANAX XR [Concomitant]
     Active Substance: ALPRAZOLAM
  38. WELLBUTRIN SR [Concomitant]
     Active Substance: BUPROPION HYDROCHLORIDE

REACTIONS (6)
  - Blood magnesium decreased [Unknown]
  - Hepatic enzyme increased [Recovering/Resolving]
  - Drug ineffective [Unknown]
  - Nasopharyngitis [Unknown]
  - Malaise [Not Recovered/Not Resolved]
  - Immune system disorder [Not Recovered/Not Resolved]
